FAERS Safety Report 7338850-4 (Version None)
Quarter: 2011Q1

REPORT INFORMATION
  Report Type: 
  Country: None (occurrence: None)
  Receive Date: 20110308
  Receipt Date: 20110225
  Transmission Date: 20110831
  Serious: Yes (Other)
  Sender: FDA-Public Use
  Company Number: US-ROCHE-762688

PATIENT
  Sex: Female
  Weight: 65.9 kg

DRUGS (2)
  1. BONIVA [Suspect]
     Indication: OSTEOPENIA
     Route: 048
  2. IRON [Concomitant]

REACTIONS (4)
  - JOINT DISLOCATION [None]
  - OSTEOPENIA [None]
  - ROTATOR CUFF SYNDROME [None]
  - BONE DENSITY DECREASED [None]
